FAERS Safety Report 8762028 (Version 1)
Quarter: 2012Q4

REPORT INFORMATION
  Report Type: 
  Country: CO (occurrence: CO)
  Receive Date: 20120829
  Receipt Date: 20120829
  Transmission Date: 20130627
  Serious: Yes (Hospitalization, Other)
  Sender: FDA-Public Use
  Company Number: CO-PFIZER INC-2012208684

PATIENT
  Age: 7 Year
  Sex: Female

DRUGS (2)
  1. GENOTROPIN [Suspect]
     Indication: TURNER^S SYNDROME
     Dosage: 1.3 mg, 1x/day
     Route: 058
     Dates: start: 2004
  2. GENOTROPIN [Suspect]
     Indication: BODY HEIGHT BELOW NORMAL

REACTIONS (6)
  - Ear disorder [Unknown]
  - Migraine [Not Recovered/Not Resolved]
  - Hypothyroidism [Unknown]
  - Ear injury [Unknown]
  - Abdominal pain upper [Not Recovered/Not Resolved]
  - Vomiting [Not Recovered/Not Resolved]
